FAERS Safety Report 5451858-9 (Version None)
Quarter: 2007Q3

REPORT INFORMATION
  Report Type: 
  Country: None (occurrence: None)
  Receive Date: 20070806
  Receipt Date: 20070305
  Transmission Date: 20080115
  Serious: Yes (Hospitalization)
  Sender: FDA-Public Use
  Company Number: 15839

PATIENT
  Age: 81 Year
  Sex: Male

DRUGS (9)
  1. CYTARABINE [Suspect]
     Indication: ACUTE MYELOID LEUKAEMIA
     Dosage: 20 MG/M2 PER_CYCLE; SC
     Route: 058
     Dates: start: 20070205
  2. TERAZOSIN HYDROCHLORIDE [Concomitant]
  3. ARANESP. MFR: NOT SPECIFIED [Concomitant]
  4. RED BLOOD CELLS [Concomitant]
  5. ENOFER      (IRON SUCROSE) [Concomitant]
  6. TOPROL-XL [Concomitant]
  7. ASPIRIN [Concomitant]
  8. VASOTEC [Concomitant]
  9. NITROSTAT [Concomitant]

REACTIONS (1)
  - THROMBOCYTOPENIA [None]
